FAERS Safety Report 17145499 (Version 1)
Quarter: 2019Q4

REPORT INFORMATION
  Report Type: Spontaneous
  Country: US (occurrence: US)
  Receive Date: 20191212
  Receipt Date: 20191212
  Transmission Date: 20200122
  Serious: No
  Sender: FDA-Public Use
  Company Number: US-TAKEDA-2019TUS069387

PATIENT
  Age: 75 Year
  Sex: Male

DRUGS (7)
  1. NINLARO [Suspect]
     Active Substance: IXAZOMIB CITRATE
     Indication: PLASMA CELL MYELOMA
     Dosage: 3 MILLIGRAM
     Route: 048
     Dates: start: 20191019
  2. ATORVASTATIN [Concomitant]
     Active Substance: ATORVASTATIN
  3. MEXILETINE [Concomitant]
     Active Substance: MEXILETINE
  4. GABAPENTIN. [Concomitant]
     Active Substance: GABAPENTIN
  5. REVLIMID [Concomitant]
     Active Substance: LENALIDOMIDE
  6. ACYCLOVIR                          /00587301/ [Concomitant]
     Active Substance: ACYCLOVIR
  7. METOPROLOL TARTRATE. [Concomitant]
     Active Substance: METOPROLOL TARTRATE

REACTIONS (1)
  - Pain [Unknown]

NARRATIVE: CASE EVENT DATE: 20191203
